FAERS Safety Report 5799176-3 (Version None)
Quarter: 2008Q3

REPORT INFORMATION
  Report Type: 
  Country: None (occurrence: None)
  Receive Date: 20080702
  Receipt Date: 20080624
  Transmission Date: 20090109
  Serious: Yes (Other)
  Sender: FDA-Public Use
  Company Number: US-PFIZER INC-2008034714

PATIENT
  Age: 42 Year
  Sex: Female
  Weight: 106.1 kg

DRUGS (1)
  1. GEODON [Suspect]
     Indication: BIPOLAR DISORDER
     Route: 048

REACTIONS (5)
  - CONVULSION [None]
  - PALPITATIONS [None]
  - PARAESTHESIA [None]
  - SYNCOPE [None]
  - TACHYCARDIA [None]
